FAERS Safety Report 5059060-X (Version None)
Quarter: 2006Q3

REPORT INFORMATION
  Report Type: 
  Country: None (occurrence: None)
  Receive Date: 20060719
  Receipt Date: 20060706
  Transmission Date: 20061208
  Serious: Yes (Hospitalization)
  Sender: FDA-Public Use
  Company Number: SU-2006-005001

PATIENT
  Age: 63 Year
  Sex: Female
  Weight: 72.5755 kg

DRUGS (3)
  1. BENICAR [Suspect]
     Indication: HYPERTENSION
     Dosage: 40 MG QD PO
     Route: 048
     Dates: start: 20060509, end: 20060509
  2. FEXOFENADINE [Concomitant]
  3. FLUOXETINE [Concomitant]

REACTIONS (5)
  - CHILLS [None]
  - COELIAC DISEASE [None]
  - NAUSEA [None]
  - PYREXIA [None]
  - VOMITING [None]
